FAERS Safety Report 24311203 (Version 2)
Quarter: 2025Q2

REPORT INFORMATION
  Report Type: Spontaneous
  Country: US (occurrence: US)
  Receive Date: 20240912
  Receipt Date: 20250604
  Transmission Date: 20250716
  Serious: No
  Sender: NOVEN
  Company Number: US-NOVEN PHARMACEUTICALS, INC.-2023-NOV-US001231

PATIENT
  Sex: Female
  Weight: 68.481 kg

DRUGS (1)
  1. COMBIPATCH [Suspect]
     Active Substance: ESTRADIOL\NORETHINDRONE ACETATE
     Indication: Hot flush
     Route: 062

REACTIONS (2)
  - Hiatus hernia [Not Recovered/Not Resolved]
  - Intentional product misuse [Not Recovered/Not Resolved]
